FAERS Safety Report 13931697 (Version 3)
Quarter: 2018Q2

REPORT INFORMATION
  Report Type: Spontaneous
  Country: CN (occurrence: CN)
  Receive Date: 20170904
  Receipt Date: 20180618
  Transmission Date: 20180711
  Serious: Yes (Death, Other)
  Sender: FDA-Public Use
  Company Number: CN-CONCORDIA PHARMACEUTICALS INC.-E2B_00008353

PATIENT
  Age: 90 Year
  Sex: Male

DRUGS (5)
  1. CYCLOPHOSPHAMIDE. [Suspect]
     Active Substance: CYCLOPHOSPHAMIDE
     Indication: B-CELL LYMPHOMA
     Dosage: D1 OF 21-DAY CHEMOTHERAPY REGIMEN
  2. ETOPOSIDE. [Suspect]
     Active Substance: ETOPOSIDE
     Indication: B-CELL LYMPHOMA
     Dosage: 100 MG/DAY D3-D5; D3 - D5 OF 21-DAY CHEMOTHERAPY REGIMEN
  3. DOXORUBICIN [Suspect]
     Active Substance: DOXORUBICIN
     Indication: B-CELL LYMPHOMA
     Dosage: D1 OF 21-DAY CHEMOTHERAPY REGIMEN
  4. PREDNISOLONE. [Suspect]
     Active Substance: PREDNISOLONE
     Indication: B-CELL LYMPHOMA
     Dosage: D1 - D5 OF 21-DAY CHEMOTHERAPY REGIMEN
  5. VINCRISTINE [Suspect]
     Active Substance: VINCRISTINE
     Indication: B-CELL LYMPHOMA
     Dosage: D1 OF 21-DAY CHEMOTHERAPY REGIMEN

REACTIONS (4)
  - Pleural effusion [Unknown]
  - Respiratory distress [Unknown]
  - Multiple organ dysfunction syndrome [Fatal]
  - Drug intolerance [Fatal]
